FAERS Safety Report 9611547 (Version 1)
Quarter: 2013Q4

REPORT INFORMATION
  Report Type: Spontaneous
  Country: US (occurrence: US)
  Receive Date: 20131010
  Receipt Date: 20131010
  Transmission Date: 20140711
  Serious: No
  Sender: FDA-Public Use
  Company Number: US-009507513-1310USA002572

PATIENT
  Age: 57 Year
  Sex: Female

DRUGS (3)
  1. VICTRELIS [Suspect]
     Dosage: (200 MG, 4 CAPSULES THREE TIMES DAILY), 800 MG, TID, 1 UNIT OF USE BOTTLE OF 12
     Route: 048
     Dates: start: 201309
  2. REBETOL [Suspect]
     Dosage: UNK
     Route: 048
  3. PEGASYS [Suspect]
     Dosage: UNK

REACTIONS (2)
  - Diarrhoea [Not Recovered/Not Resolved]
  - Inappropriate schedule of drug administration [Unknown]
